FAERS Safety Report 16663638 (Version 1)
Quarter: 2019Q3

REPORT INFORMATION
  Report Type: Report from Study
  Country: US (occurrence: US)
  Receive Date: 20190802
  Receipt Date: 20190802
  Transmission Date: 20191004
  Serious: No
  Sender: FDA-Public Use
  Company Number: US-EXELIXIS-CABO-19019935

PATIENT
  Age: 68 Year
  Sex: Female

DRUGS (2)
  1. CABOMETYX [Suspect]
     Active Substance: CABOZANTINIB S-MALATE
     Indication: RENAL CELL CARCINOMA STAGE IV
     Dosage: 60 MG, QD PM ON AN EMPTY STOMACH(AM WITHOUT FOOD)
     Route: 048
     Dates: start: 20180918
  2. SLOW MAG [Concomitant]
     Active Substance: MAGNESIUM CHLORIDE

REACTIONS (7)
  - Diarrhoea [Not Recovered/Not Resolved]
  - Blood magnesium decreased [Not Recovered/Not Resolved]
  - Fatigue [Not Recovered/Not Resolved]
  - Nausea [Unknown]
  - Hair colour changes [Unknown]
  - Taste disorder [Unknown]
  - Blood sodium decreased [Not Recovered/Not Resolved]

NARRATIVE: CASE EVENT DATE: 201906
